FAERS Safety Report 7375011-7 (Version None)
Quarter: 2011Q1

REPORT INFORMATION
  Report Type: 
  Country: None (occurrence: None)
  Receive Date: 20110325
  Receipt Date: 20110314
  Transmission Date: 20110831
  Serious: Yes (Other)
  Sender: FDA-Public Use
  Company Number: PHHY2010US03305

PATIENT
  Sex: Female
  Weight: 70.85 kg

DRUGS (20)
  1. ASPIRIN [Suspect]
     Dosage: 91 MG, UNK
  2. MAGNESIUM [Concomitant]
  3. VITAMIN B-12 [Concomitant]
  4. SLEEVAC [Concomitant]
  5. ZOCOR [Concomitant]
  6. CALCIUM [Concomitant]
  7. VITAMIN E [Concomitant]
  8. MECLIZINE [Concomitant]
  9. LECITHIN [Concomitant]
  10. GLEEVEC [Suspect]
     Indication: CHRONIC MYELOID LEUKAEMIA
     Dosage: 400 MG, QD
     Route: 048
     Dates: start: 20070101
  11. ZOFRAN [Concomitant]
  12. MULTIVITAMIN [Concomitant]
  13. TOPICORTE [Concomitant]
  14. FOLIC ACID [Concomitant]
  15. SIMVASTATIN [Concomitant]
  16. ATENOLOL [Concomitant]
  17. FIORICET [Concomitant]
  18. PRILOSEC [Concomitant]
  19. MIDRIN [Concomitant]
  20. CALCIUM WITH VITAMIN D [Concomitant]

REACTIONS (10)
  - HAEMATEMESIS [None]
  - MUSCULOSKELETAL CHEST PAIN [None]
  - CHEST PAIN [None]
  - ABDOMINAL PAIN UPPER [None]
  - HYPOKALAEMIA [None]
  - COSTOCHONDRITIS [None]
  - ABDOMINAL DISCOMFORT [None]
  - HAEMOGLOBIN DECREASED [None]
  - GASTRIC HAEMORRHAGE [None]
  - HAEMATOCRIT DECREASED [None]
